FAERS Safety Report 10431169 (Version 1)
Quarter: 2014Q3

REPORT INFORMATION
  Report Type: Spontaneous
  Country: BR (occurrence: BR)
  Receive Date: 20140904
  Receipt Date: 20140904
  Transmission Date: 20150326
  Serious: Yes (Other)
  Sender: FDA-Public Use
  Company Number: CHPA2014BR011480

PATIENT
  Age: 69 Year
  Sex: Female

DRUGS (1)
  1. CIBALENA [Suspect]
     Active Substance: ACETAMINOPHEN\ASPIRIN\CAFFEINE
     Indication: DYSMENORRHOEA
     Dosage: 1 DF, QMO
     Route: 048

REACTIONS (5)
  - Scoliosis [Unknown]
  - Exostosis [Unknown]
  - Hypertension [Unknown]
  - Osteoarthritis [Unknown]
  - Spinal pain [Recovering/Resolving]
